FAERS Safety Report 20918879 (Version 3)
Quarter: 2022Q3

REPORT INFORMATION
  Report Type: Spontaneous
  Country: CA (occurrence: CA)
  Receive Date: 20220606
  Receipt Date: 20220714
  Transmission Date: 20221027
  Serious: Yes (Other)
  Sender: FDA-Public Use
  Company Number: CA-CELLTRION INC.-2022CA007371

PATIENT

DRUGS (2)
  1. INFLECTRA [Suspect]
     Active Substance: INFLIXIMAB-DYYB
     Indication: Ankylosing spondylitis
     Dosage: 650 MG, INDUCTION AT Q 0 , 2, 6 WEEK THEN EVERY 6 WEEKS
     Route: 042
     Dates: start: 20211013, end: 20220329
  2. INFLECTRA [Suspect]
     Active Substance: INFLIXIMAB-DYYB
     Dosage: 650 MG, EVERY 4 WEEKS
     Route: 042
     Dates: start: 20220426

REACTIONS (2)
  - Weight increased [Unknown]
  - Off label use [Unknown]
